FAERS Safety Report 6763309-2 (Version None)
Quarter: 2010Q2

REPORT INFORMATION
  Report Type: 
  Country: None (occurrence: None)
  Receive Date: 20100610
  Receipt Date: 20100603
  Transmission Date: 20101027
  Serious: Yes (Death, Hospitalization)
  Sender: FDA-Public Use
  Company Number: US-JNJFOC-20100602658

PATIENT
  Sex: Male

DRUGS (3)
  1. LOPERAMIDE [Suspect]
     Indication: DIARRHOEA
     Route: 048
  2. CAMPTOSAR [Suspect]
     Indication: OESOPHAGEAL CARCINOMA
     Route: 042
  3. CAMPTOSAR [Suspect]
     Route: 042

REACTIONS (5)
  - ATRIAL FIBRILLATION [None]
  - CARDIOPULMONARY FAILURE [None]
  - DEATH [None]
  - ILEUS [None]
  - OVERDOSE [None]
